FAERS Safety Report 8342267-3 (Version None)
Quarter: 2012Q2

REPORT INFORMATION
  Report Type: 
  Country: None (occurrence: None)
  Receive Date: 20120507
  Receipt Date: 20120430
  Transmission Date: 20120825
  Serious: Yes (Other)
  Sender: FDA-Public Use
  Company Number: US-MERCK-1204USA04505

PATIENT
  Sex: Female

DRUGS (2)
  1. TIMOPTIC [Suspect]
     Route: 047
  2. TRUSOPT [Suspect]
     Route: 047

REACTIONS (4)
  - BLINDNESS [None]
  - PARALYSIS [None]
  - ADVERSE EVENT [None]
  - EYELID OEDEMA [None]
